FAERS Safety Report 7302759-2 (Version None)
Quarter: 2011Q1

REPORT INFORMATION
  Report Type: 
  Country: None (occurrence: None)
  Receive Date: 20110218
  Receipt Date: 20110216
  Transmission Date: 20110831
  Serious: Yes (Life-Threatening, Hospitalization, Other)
  Sender: FDA-Public Use
  Company Number: US-ABBOTT-11P-163-0705769-00

PATIENT
  Sex: Female
  Weight: 1.38 kg

DRUGS (6)
  1. GENTAMICIN [Concomitant]
     Dates: start: 20110201
  2. EPIVIR [Concomitant]
     Indication: HUMAN IMMUNODEFICIENCY VIRUS TRANSMISSION
     Dates: start: 20110215
  3. KALETRA [Suspect]
     Indication: HUMAN IMMUNODEFICIENCY VIRUS TRANSMISSION
     Dates: start: 20110216, end: 20110216
  4. AMPICILLIN [Concomitant]
     Dates: start: 20110201
  5. SURFACTANT [Concomitant]
     Indication: PREMATURE BABY
     Dates: start: 20110215, end: 20110215
  6. AZT [Concomitant]
     Indication: HUMAN IMMUNODEFICIENCY VIRUS TRANSMISSION
     Dates: start: 20110215

REACTIONS (7)
  - HYPERBILIRUBINAEMIA [None]
  - ACCIDENTAL OVERDOSE [None]
  - INCORRECT DOSE ADMINISTERED [None]
  - PERICARDIAL EFFUSION [None]
  - LACTIC ACIDOSIS [None]
  - ELECTROCARDIOGRAM QT PROLONGED [None]
  - BLOOD ALCOHOL INCREASED [None]
